FAERS Safety Report 15722553 (Version 1)
Quarter: 2018Q4

REPORT INFORMATION
  Report Type: Report from Study
  Country: RU (occurrence: RU)
  Receive Date: 20181214
  Receipt Date: 20181214
  Transmission Date: 20190205
  Serious: Yes (Hospitalization)
  Sender: FDA-Public Use
  Company Number: RU-ACTELION-A-CH2018-183409

PATIENT
  Age: 76 Year
  Sex: Female

DRUGS (6)
  1. MACITENTAN [Suspect]
     Active Substance: MACITENTAN
     Indication: CARDIAC FAILURE
     Dosage: 10 MG, OD
     Route: 048
     Dates: start: 20180913
  2. MACITENTAN [Suspect]
     Active Substance: MACITENTAN
     Indication: PULMONARY VASCULAR DISORDER
     Dosage: 10 MG, OD
     Route: 048
     Dates: start: 20180712, end: 20180808
  3. MACITENTAN [Suspect]
     Active Substance: MACITENTAN
     Dosage: 10 MG, OD
     Route: 048
     Dates: start: 20180809, end: 20180912
  4. MACITENTAN [Suspect]
     Active Substance: MACITENTAN
     Indication: CARDIAC FAILURE
     Dosage: 10 MG, OD
     Route: 048
     Dates: start: 20180913
  5. MACITENTAN [Suspect]
     Active Substance: MACITENTAN
     Dosage: 10 MG, OD
     Route: 048
     Dates: start: 20180809, end: 20180912
  6. MACITENTAN [Suspect]
     Active Substance: MACITENTAN
     Indication: PULMONARY VASCULAR DISORDER
     Dosage: 10 MG, OD
     Route: 048
     Dates: start: 20180712, end: 20180808

REACTIONS (1)
  - Pulmonary oedema [Not Recovered/Not Resolved]

NARRATIVE: CASE EVENT DATE: 20181207
